FAERS Safety Report 4625745-X (Version None)
Quarter: 2005Q1

REPORT INFORMATION
  Report Type: 
  Country: None (occurrence: None)
  Receive Date: 20050330
  Receipt Date: 20050311
  Transmission Date: 20050727
  Serious: Yes (Other)
  Sender: FDA-Public Use
  Company Number: GBS050316901

PATIENT
  Age: 80 Year
  Sex: Female

DRUGS (3)
  1. FORTEO [Suspect]
     Indication: OSTEOPOROSIS
     Dosage: 20 UG DAY
     Dates: start: 20050117, end: 20050128
  2. GABAPENTIN [Concomitant]
  3. AMITRIPTYLINE HCL TAB [Concomitant]

REACTIONS (1)
  - MOBILITY DECREASED [None]
